FAERS Safety Report 23573676 (Version 1)
Quarter: 2024Q1

REPORT INFORMATION
  Report Type: Report from Study
  Country: US (occurrence: US)
  Receive Date: 20240228
  Receipt Date: 20240228
  Transmission Date: 20240409
  Serious: No
  Sender: FDA-Public Use
  Company Number: US-BIOVITRUM-2024-US-003006

PATIENT
  Age: 7 Month
  Sex: Male
  Weight: 6.35 kg

DRUGS (2)
  1. SYNAGIS [Suspect]
     Active Substance: PALIVIZUMAB
     Indication: Premature baby
     Dosage: 15MG/KG EVERY 28 DAYS
     Route: 030
  2. MIRALAX [Concomitant]
     Active Substance: POLYETHYLENE GLYCOL 3350
     Indication: Product used for unknown indication

REACTIONS (2)
  - Cough [Unknown]
  - Nasopharyngitis [Unknown]
